FAERS Safety Report 11848956 (Version 9)
Quarter: 2016Q2

REPORT INFORMATION
  Report Type: Report from Study
  Country: CA (occurrence: CA)
  Receive Date: 20151218
  Receipt Date: 20160626
  Transmission Date: 20160815
  Serious: Yes (Death, Hospitalization, Other)
  Sender: FDA-Public Use
  Company Number: PHHY2013CA147933

PATIENT
  Age: 72 Year
  Sex: Male

DRUGS (7)
  1. SANDOSTATIN LAR DEPOT [Suspect]
     Active Substance: OCTREOTIDE ACETATE
     Indication: NEUROENDOCRINE TUMOUR
     Dosage: 20 MG, QMO (ONCE A MONTH)
     Route: 030
     Dates: start: 20120530
  2. SANDOSTATIN [Suspect]
     Active Substance: OCTREOTIDE ACETATE
     Indication: NEUROENDOCRINE TUMOUR
     Dosage: 100 UG, TID
     Route: 058
     Dates: start: 20120528
  3. NORVASC [Concomitant]
     Active Substance: AMLODIPINE BESYLATE
     Indication: PRODUCT USED FOR UNKNOWN INDICATION
     Dosage: 10 MG, UNK
     Route: 065
  4. SANDOSTATIN [Suspect]
     Active Substance: OCTREOTIDE ACETATE
     Dosage: UNK, Q8H (UNKNOWN DOSE, EVERY 8 HOURS)
     Route: 058
     Dates: start: 20160203, end: 20160209
  5. NORVASC [Concomitant]
     Active Substance: AMLODIPINE BESYLATE
     Dosage: 5 MG, UNK
     Route: 048
  6. AFINITOR [Suspect]
     Active Substance: EVEROLIMUS
     Indication: NEUROENDOCRINE TUMOUR
     Dosage: 10 MG, QD (ONCE DAILY)
     Route: 048
  7. DIOVAN [Suspect]
     Active Substance: VALSARTAN
     Indication: PRODUCT USED FOR UNKNOWN INDICATION
     Dosage: 1 DF, QD
     Route: 048
     Dates: end: 2014

REACTIONS (14)
  - Syncope [Unknown]
  - Blood glucose increased [Unknown]
  - Blood pressure increased [Unknown]
  - Dehydration [Unknown]
  - Heart rate decreased [Unknown]
  - Anaemia [Unknown]
  - Fatigue [Not Recovered/Not Resolved]
  - Hypersomnia [Unknown]
  - Blood pressure systolic increased [Unknown]
  - Hypoglycaemia [Unknown]
  - Drug ineffective [Unknown]
  - Asthenia [Unknown]
  - Blood pressure decreased [Unknown]
  - Malignant neoplasm progression [Fatal]

NARRATIVE: CASE EVENT DATE: 20150527
